FAERS Safety Report 8805754 (Version 1)
Quarter: 2012Q4

REPORT INFORMATION
  Report Type: 
  Country: US (occurrence: US)
  Receive Date: 20120924
  Receipt Date: 20120924
  Transmission Date: 20130627
  Serious: No
  Sender: FDA-Public Use
  Company Number: US-PFIZER INC-2012234087

PATIENT
  Sex: Male

DRUGS (1)
  1. LIPITOR [Suspect]
     Dosage: UNK
     Route: 048
     Dates: start: 2011

REACTIONS (11)
  - Food interaction [Unknown]
  - Hypersensitivity [Unknown]
  - Rash [Unknown]
  - Gastric disorder [Unknown]
  - Malaise [Unknown]
  - Nausea [Unknown]
  - Dyspnoea [Unknown]
  - Pain [Unknown]
  - Muscle spasms [Unknown]
  - Myalgia [Unknown]
  - Abdominal distension [Unknown]
